FAERS Safety Report 16964286 (Version 1)
Quarter: 2019Q4

REPORT INFORMATION
  Report Type: Spontaneous
  Country: US (occurrence: US)
  Receive Date: 20191026
  Receipt Date: 20191026
  Transmission Date: 20200122
  Serious: Yes (Other)
  Sender: FDA-Public Use
  Company Number: None

PATIENT
  Age: 28 Week
  Sex: Female
  Weight: 166.5 kg

DRUGS (3)
  1. METFORMIN [Concomitant]
     Active Substance: METFORMIN HYDROCHLORIDE
  2. ZITHROMAX [Suspect]
     Active Substance: AZITHROMYCIN DIHYDRATE
     Indication: BACTERIAL INFECTION
     Dates: start: 20190922, end: 20191011
  3. COZARR [Concomitant]

REACTIONS (4)
  - Abdominal pain [None]
  - Vaginal haemorrhage [None]
  - Haematochezia [None]
  - Abdominal distension [None]

NARRATIVE: CASE EVENT DATE: 20191022
